FAERS Safety Report 6682999-6 (Version None)
Quarter: 2010Q2

REPORT INFORMATION
  Report Type: 
  Country: None (occurrence: None)
  Receive Date: 20100413
  Receipt Date: 20100329
  Transmission Date: 20101027
  Serious: Yes (Hospitalization)
  Sender: FDA-Public Use
  Company Number: 2010AL002033

PATIENT
  Age: 41 Year
  Sex: Female

DRUGS (5)
  1. FLUDARABINE PHOSPHATE [Suspect]
     Indication: CHRONIC MYELOID LEUKAEMIA
     Dosage: 50 MG PER VIAL
  2. DASATINIB [Concomitant]
  3. CYTARABINE [Concomitant]
  4. NEUPOGEN [Concomitant]
  5. IDARUBICAN [Concomitant]

REACTIONS (5)
  - BACTERIAL INFECTION [None]
  - BRONCHITIS FUNGAL [None]
  - FEBRILE NEUTROPENIA [None]
  - PNEUMONITIS [None]
  - RASH [None]
